FAERS Safety Report 6408058-5 (Version None)
Quarter: 2009Q4

REPORT INFORMATION
  Report Type: 
  Country: None (occurrence: None)
  Receive Date: 20091021
  Receipt Date: 20091013
  Transmission Date: 20100525
  Serious: Yes (Hospitalization, Other)
  Sender: FDA-Public Use
  Company Number: US-ELI_LILLY_AND_COMPANY-US200909000489

PATIENT
  Sex: Male
  Weight: 100.68 kg

DRUGS (13)
  1. BYETTA [Suspect]
     Indication: TYPE 2 DIABETES MELLITUS
     Dosage: 5 UG, 2/D
     Route: 058
     Dates: start: 20090101, end: 20090101
  2. BYETTA [Suspect]
     Dosage: 10 UG, 2/D
     Route: 058
     Dates: start: 20090101
  3. GLIMEPIRIDE [Concomitant]
     Dosage: UNK, DAILY (1/D)
     Dates: start: 20090601
  4. PIOGLITAZONE [Concomitant]
     Dosage: 15 MG, 2/D
  5. METFORMIN [Concomitant]
     Dosage: 500 MG, 2/D
  6. RAMIPRIL [Concomitant]
     Dosage: 2.5 MG, DAILY (1/D)
  7. LIPITOR [Concomitant]
     Dosage: 40 MG, DAILY (1/D)
  8. FUROSEMIDE [Concomitant]
     Dosage: 40 MG, DAILY (1/D)
  9. NORVASC [Concomitant]
  10. MULTI-VITAMIN [Concomitant]
     Dosage: UNK, DAILY (1/D)
  11. IRON [Concomitant]
     Dosage: UNK, DAILY (1/D)
  12. ANTARA (MICRONIZED) [Concomitant]
  13. AMBIEN CR [Concomitant]

REACTIONS (1)
  - GASTRIC ULCER HAEMORRHAGE [None]
